FAERS Safety Report 8667805 (Version 2)
Quarter: 2012Q4

REPORT INFORMATION
  Report Type: 
  Country: FR (occurrence: FR)
  Receive Date: 20120717
  Receipt Date: 20120921
  Transmission Date: 20130627
  Serious: Yes (Life-Threatening)
  Sender: FDA-Public Use
  Company Number: FR-PFIZER INC-2012166385

PATIENT
  Age: 84 Year
  Sex: Female

DRUGS (4)
  1. TRIFLUCAN [Suspect]
     Indication: SEPSIS
     Dosage: 100 mg, 1x/day
     Route: 042
     Dates: start: 20120606, end: 20120613
  2. ORBENINE [Suspect]
     Indication: SEPSIS
     Dosage: 2 g, 4x/day
     Route: 042
     Dates: start: 20120523, end: 20120616
  3. BACTRIM [Suspect]
     Indication: SEPSIS
     Dosage: 800 mg, 3x/day
     Route: 042
     Dates: start: 20120522, end: 20120602
  4. RIFADINE [Suspect]
     Indication: SEPSIS
     Dosage: 600 mg, 2x/day
     Route: 042
     Dates: start: 20120529, end: 20120616

REACTIONS (3)
  - Thrombocytopenia [Unknown]
  - Neutropenia [Recovering/Resolving]
  - Pancytopenia [Unknown]
